FAERS Safety Report 9265523 (Version 3)
Quarter: 2013Q4

REPORT INFORMATION
  Report Type: Report from Study
  Country: CL (occurrence: CL)
  Receive Date: 20130501
  Receipt Date: 20131126
  Transmission Date: 20140711
  Serious: Yes (Disabling, Other)
  Sender: FDA-Public Use
  Company Number: PHHY2013CL042963

PATIENT
  Age: 60 Year
  Sex: Male

DRUGS (3)
  1. TAREG [Suspect]
     Indication: HYPERTENSION
     Dosage: 1 DF, (160 MG) EVERY 3 DAYS
     Route: 048
  2. CARVEDILOL [Concomitant]
     Indication: CARDIAC DISORDER
     Dosage: UNK UKN, UNK
     Route: 048
  3. ASPIRIN [Concomitant]
     Indication: CARDIAC DISORDER
     Dosage: UNK UKN, UNK
     Route: 048

REACTIONS (10)
  - Spinal disorder [Not Recovered/Not Resolved]
  - Asthenia [Not Recovered/Not Resolved]
  - Osteoarthritis [Recovering/Resolving]
  - Groin pain [Unknown]
  - Emotional disorder [Unknown]
  - Depression [Recovering/Resolving]
  - Radiculopathy [Unknown]
  - Pain [Unknown]
  - Paraesthesia [Unknown]
  - Concomitant disease aggravated [Not Recovered/Not Resolved]
